FAERS Safety Report 13429238 (Version 1)
Quarter: 2017Q2

REPORT INFORMATION
  Report Type: Spontaneous
  Country: None (occurrence: JP)
  Receive Date: 20170411
  Receipt Date: 20170411
  Transmission Date: 20170830
  Serious: Yes (Other)
  Sender: FDA-Public Use
  Company Number: JP-ALLERGAN-1713933US

PATIENT
  Sex: Male

DRUGS (2)
  1. SILODOSIN - BP [Suspect]
     Active Substance: SILODOSIN
     Indication: BLADDER OBSTRUCTION
     Dosage: 16 MG, UNK
     Dates: end: 20170329
  2. SILODOSIN - BP [Suspect]
     Active Substance: SILODOSIN
     Dosage: 8 MG, QD
     Dates: start: 20170330

REACTIONS (2)
  - Overdose [Unknown]
  - Urinary retention [Recovered/Resolved]

NARRATIVE: CASE EVENT DATE: 20170329
